FAERS Safety Report 7278899-3 (Version None)
Quarter: 2011Q1

REPORT INFORMATION
  Report Type: 
  Country: None (occurrence: None)
  Receive Date: 20110207
  Receipt Date: 20110126
  Transmission Date: 20110831
  Serious: Yes (Hospitalization, Other)
  Sender: FDA-Public Use
  Company Number: US-CELGENEUS-163-20785-10111641

PATIENT
  Sex: Male

DRUGS (16)
  1. TAMSULOSIN HCL [Concomitant]
     Route: 048
     Dates: start: 20091022
  2. THALOMID [Suspect]
     Indication: MULTIPLE MYELOMA
     Route: 048
     Dates: start: 20091210, end: 20100801
  3. SIMVASTATIN [Concomitant]
     Route: 048
     Dates: start: 20080829
  4. DEXAMETHASONE [Concomitant]
     Route: 048
     Dates: start: 20091022
  5. GUAR GUM [Concomitant]
     Route: 048
     Dates: start: 20100729
  6. ALDACTONE [Concomitant]
     Route: 065
     Dates: end: 20100913
  7. WARFARIN [Concomitant]
     Route: 048
     Dates: start: 20101029
  8. FERROUS SULFATE TAB [Concomitant]
     Route: 048
     Dates: start: 20100413
  9. LEVETIRACETAM [Concomitant]
     Route: 048
     Dates: start: 20080829
  10. SIMVASTATIN [Concomitant]
     Route: 048
     Dates: start: 20101029
  11. FINASTERIDE [Concomitant]
     Route: 048
     Dates: start: 20091022
  12. OMEPRAZOLE [Concomitant]
     Route: 048
     Dates: start: 20091022
  13. THALOMID [Suspect]
     Dosage: UNKNOWN
     Route: 048
  14. FENTANYL [Concomitant]
     Route: 062
  15. TIMOLOL MALEATE [Concomitant]
     Dosage: 0.5%
     Route: 047
     Dates: start: 20081229
  16. METOPROLOL TARTRATE [Concomitant]
     Route: 048
     Dates: start: 20100729

REACTIONS (7)
  - FALL [None]
  - FAILURE TO THRIVE [None]
  - CONVULSION [None]
  - CARDIAC FAILURE CONGESTIVE [None]
  - URINARY TRACT INFECTION [None]
  - HIP FRACTURE [None]
  - HYPERKALAEMIA [None]
